FAERS Safety Report 18293271 (Version 1)
Quarter: 2020Q3

REPORT INFORMATION
  Report Type: Spontaneous
  Country: JP (occurrence: JP)
  Receive Date: 20200921
  Receipt Date: 20200921
  Transmission Date: 20201103
  Serious: Yes (Other)
  Sender: FDA-Public Use
  Company Number: JP-SA-2020SA252199

PATIENT

DRUGS (1)
  1. LANTUS SOLOSTAR [Suspect]
     Active Substance: INSULIN GLARGINE
     Indication: PRODUCT USED FOR UNKNOWN INDICATION
     Dosage: UNK UNK, QD
     Route: 058

REACTIONS (11)
  - Back pain [Unknown]
  - Internal haemorrhage [Unknown]
  - Irritability [Unknown]
  - Product quality issue [Unknown]
  - Suicidal ideation [Unknown]
  - Weight decreased [Unknown]
  - Pain in extremity [Unknown]
  - Decreased appetite [Unknown]
  - Headache [Unknown]
  - Physical deconditioning [Unknown]
  - Accident [Unknown]

NARRATIVE: CASE EVENT DATE: 2015
